FAERS Safety Report 10746696 (Version 2)
Quarter: 2015Q1

REPORT INFORMATION
  Report Type: Report from Study
  Country: US (occurrence: US)
  Receive Date: 20150128
  Receipt Date: 20150224
  Transmission Date: 20150721
  Serious: Yes (Life-Threatening)
  Sender: FDA-Public Use
  Company Number: US-009507513-1501USA010334

PATIENT

DRUGS (2)
  1. VELIPARIB [Suspect]
     Active Substance: VELIPARIB
     Dosage: 40 MG TWICE DAILY ON DAYS 1-7
     Route: 048
  2. TEMODAR [Suspect]
     Active Substance: TEMOZOLOMIDE
     Indication: PROSTATE CANCER METASTATIC
     Dosage: ONCE DAILY(150MG/M2/DAY CYCLE1;IF WELL TOLERATED THEN 200MG/M2/DAY CYCLE2 ONWARDS)ON DAYS1-5 Q28DAYS
     Route: 048

REACTIONS (1)
  - Colitis [Unknown]
